FAERS Safety Report 10042892 (Version 2)
Quarter: 2014Q2

REPORT INFORMATION
  Report Type: Spontaneous
  Country: CN (occurrence: CN)
  Receive Date: 20140328
  Receipt Date: 20140626
  Transmission Date: 20141212
  Serious: Yes (Other)
  Sender: FDA-Public Use
  Company Number: CN-ABBVIE-14P-035-1216936-00

PATIENT
  Age: 9 Month
  Sex: Female

DRUGS (3)
  1. DEPAKINE [Suspect]
     Indication: EPILEPSY CONGENITAL
     Route: 048
     Dates: start: 20130729
  2. DEPAKINE [Suspect]
     Route: 048
     Dates: start: 201311
  3. DEPAKINE [Suspect]
     Route: 048

REACTIONS (3)
  - Muscle spasms [Recovered/Resolved]
  - Faeces hard [Recovering/Resolving]
  - Petit mal epilepsy [Recovered/Resolved]
